FAERS Safety Report 6544099-5 (Version None)
Quarter: 2010Q1

REPORT INFORMATION
  Report Type: 
  Country: None (occurrence: None)
  Receive Date: 20100114
  Receipt Date: 20091117
  Transmission Date: 20100710
  Serious: No
  Sender: FDA-Public Use
  Company Number: 2009BM000320

PATIENT

DRUGS (1)
  1. KUVAN [Suspect]
     Indication: PHENYLKETONURIA
     Dosage: ;PO
     Route: 048
     Dates: start: 20070101

REACTIONS (4)
  - AMINO ACID LEVEL INCREASED [None]
  - FATIGUE [None]
  - HEADACHE [None]
  - MALAISE [None]
